FAERS Safety Report 23072538 (Version 1)
Quarter: 2023Q4

REPORT INFORMATION
  Report Type: Other
  Country: DE (occurrence: None)
  Receive Date: 20231017
  Receipt Date: 20231017
  Transmission Date: 20240110
  Serious: Yes (Hospitalization)
  Sender: FDA-Public Use
  Company Number: DE-ROCHE-3435270

PATIENT
  Age: 34 Year
  Sex: Female

DRUGS (3)
  1. OCREVUS [Suspect]
     Active Substance: OCRELIZUMAB
     Indication: Relapsing-remitting multiple sclerosis
     Route: 042
     Dates: start: 20200701
  2. RITUXIMAB [Suspect]
     Active Substance: RITUXIMAB
     Indication: Neuromyelitis optica spectrum disorder
     Route: 065
     Dates: start: 2014, end: 2019
  3. EUTHYROX [Concomitant]
     Active Substance: LEVOTHYROXINE SODIUM

REACTIONS (7)
  - COVID-19 [Recovered/Resolved]
  - COVID-19 pneumonia [Recovered/Resolved]
  - Viral infection [Recovered/Resolved]
  - Pyrexia [Recovered/Resolved]
  - Dyspnoea [Not Recovered/Not Resolved]
  - Immunoglobulins abnormal [Not Recovered/Not Resolved]
  - Off label use [Unknown]

NARRATIVE: CASE EVENT DATE: 20200701
